FAERS Safety Report 8972149 (Version 1)
Quarter: 2012Q4

REPORT INFORMATION
  Report Type: Report from Study
  Country: GB (occurrence: GB)
  Receive Date: 20121218
  Receipt Date: 20121218
  Transmission Date: 20130627
  Serious: Yes (Other)
  Sender: FDA-Public Use
  Company Number: GB-VERTEX PHARMACEUTICALS INC.-2012-026341

PATIENT
  Age: 56 Year
  Sex: Male

DRUGS (5)
  1. VX-950 (TELAPREVIR) [Suspect]
     Indication: HEPATITIS C
     Dosage: 750 mg, tid
     Route: 048
  2. EPO [Suspect]
     Indication: ANAEMIA
     Route: 065
     Dates: start: 20121117
  3. EPO [Suspect]
     Indication: FATIGUE
  4. PEG INTERFERON [Concomitant]
     Indication: PRODUCT USED FOR UNKNOWN INDICATION
     Dosage: Dosage Form: Unspecified
     Route: 065
  5. RIBAVIRIN [Concomitant]
     Indication: PRODUCT USED FOR UNKNOWN INDICATION
     Dosage: Dosage Form: Unspecified
     Route: 065

REACTIONS (1)
  - Rash [Not Recovered/Not Resolved]
